FAERS Safety Report 6785791-7 (Version None)
Quarter: 2010Q2

REPORT INFORMATION
  Report Type: 
  Country: None (occurrence: None)
  Receive Date: 20100621
  Receipt Date: 20100621
  Transmission Date: 20101027
  Serious: No
  Sender: FDA-Public Use
  Company Number: None

PATIENT
  Age: 38 Year
  Sex: Male
  Weight: 129.2752 kg

DRUGS (1)
  1. AMLODIPINE-BENAZEPRIL 10-20 MG DR. REDDY'S [Suspect]
     Indication: HYPERTENSION
     Dosage: 1 PILL PER DAY PO
     Route: 048
     Dates: start: 20100607, end: 20100616

REACTIONS (4)
  - DIZZINESS [None]
  - DYSPNOEA [None]
  - JOINT SWELLING [None]
  - PRODUCT SUBSTITUTION ISSUE [None]
